FAERS Safety Report 8290822-1 (Version None)
Quarter: 2012Q2

REPORT INFORMATION
  Report Type: 
  Country: None (occurrence: None)
  Receive Date: 20120417
  Receipt Date: 20110809
  Transmission Date: 20120825
  Serious: No
  Sender: FDA-Public Use
  Company Number: US-BRISTOL-MYERS SQUIBB COMPANY-15958242

PATIENT
  Age: 73 Year
  Sex: Female

DRUGS (2)
  1. HYDREA [Suspect]
  2. ANAGRELIDE HCL [Suspect]

REACTIONS (3)
  - MALAISE [None]
  - DIZZINESS [None]
  - DRUG INTOLERANCE [None]
